FAERS Safety Report 23075133 (Version 1)
Quarter: 2023Q4

REPORT INFORMATION
  Report Type: Spontaneous
  Country: CA (occurrence: CA)
  Receive Date: 20231017
  Receipt Date: 20231017
  Transmission Date: 20240109
  Serious: Yes (Other)
  Sender: FDA-Public Use
  Company Number: CA-PFIZER INC-202300291030

PATIENT
  Age: 61 Year
  Sex: Male

DRUGS (1)
  1. RUXIENCE [Suspect]
     Active Substance: RITUXIMAB-PVVR
     Indication: Myasthenia gravis
     Dosage: 1000 MG, DAY 1 AND DAY 15 (DOSAGE ADMINISTERED: 1000MG, DAY 1)
     Route: 042
     Dates: start: 20231010

REACTIONS (6)
  - Chest discomfort [Recovering/Resolving]
  - Throat irritation [Recovering/Resolving]
  - Sinusitis [Recovering/Resolving]
  - Oxygen saturation decreased [Recovered/Resolved]
  - Vital functions abnormal [Unknown]
  - Off label use [Unknown]

NARRATIVE: CASE EVENT DATE: 20231010
